FAERS Safety Report 17000299 (Version 1)
Quarter: 2019Q4

REPORT INFORMATION
  Report Type: Spontaneous
  Country: US (occurrence: US)
  Receive Date: 20191106
  Receipt Date: 20191106
  Transmission Date: 20200122
  Serious: Yes (Other)
  Sender: FDA-Public Use
  Company Number: US-PFIZER INC-2019008680

PATIENT
  Age: 58 Year
  Sex: Male

DRUGS (3)
  1. VIAGRA [Suspect]
     Active Substance: SILDENAFIL CITRATE
     Dosage: 2 DF 30 MIN TO 4 HOURS BEFORE SEXUAL ACTIVITY [MAX 100 MG/24HR]
  2. VIAGRA [Suspect]
     Active Substance: SILDENAFIL CITRATE
     Dosage: 100 MG (1/2 TO 1 TAB 30 MIN TO 4 HOURS BEFORE SEXUAL ACTIVITY [MAX 100 MG/24HR])
  3. VIAGRA [Suspect]
     Active Substance: SILDENAFIL CITRATE
     Indication: ERECTILE DYSFUNCTION
     Dosage: 50 MG (1/2 TO 1 TAB 30 MIN TO 4 HOURS BEFORE SEXUAL ACTIVITY [MAX 100 MG/24HR])

REACTIONS (2)
  - Cerebral haemorrhage [Unknown]
  - Product dispensing error [Unknown]
